FAERS Safety Report 8376694-5 (Version None)
Quarter: 2012Q2

REPORT INFORMATION
  Report Type: 
  Country: None (occurrence: None)
  Receive Date: 20120518
  Receipt Date: 20120508
  Transmission Date: 20120825
  Serious: Yes (Hospitalization)
  Sender: FDA-Public Use
  Company Number: DKLU1077594

PATIENT
  Age: 43 Year
  Sex: Male

DRUGS (5)
  1. LORAZEPAM [Concomitant]
  2. SABRIL [Suspect]
     Indication: TEMPORAL LOBE EPILEPSY
     Dosage: SEE IMAGE
     Route: 048
     Dates: start: 20111101
  3. METOPROLOL TARTRATE [Concomitant]
  4. RISPERDAL [Concomitant]
  5. VIMPAT [Concomitant]

REACTIONS (6)
  - MULTIPLE INJURIES [None]
  - MUSCLE TWITCHING [None]
  - AGGRESSION [None]
  - DEPRESSION [None]
  - DEATH OF RELATIVE [None]
  - ABNORMAL BEHAVIOUR [None]
